FAERS Safety Report 8115592-9 (Version None)
Quarter: 2012Q1

REPORT INFORMATION
  Report Type: 
  Country: None (occurrence: None)
  Receive Date: 20120206
  Receipt Date: 20120131
  Transmission Date: 20120608
  Serious: Yes (Other)
  Sender: FDA-Public Use
  Company Number: NO-BAYER-2012-010179

PATIENT
  Age: 46 Year
  Sex: Female

DRUGS (1)
  1. CLOTRIMAZOLE [Suspect]

REACTIONS (3)
  - VAGINAL HAEMORRHAGE [None]
  - VULVOVAGINAL PAIN [None]
  - VULVOVAGINAL DISCOMFORT [None]
